FAERS Safety Report 7525475-0 (Version None)
Quarter: 2011Q2

REPORT INFORMATION
  Report Type: 
  Country: None (occurrence: None)
  Receive Date: 20110606
  Receipt Date: 20110526
  Transmission Date: 20111010
  Serious: Yes (Hospitalization)
  Sender: FDA-Public Use
  Company Number: LB-ROCHE-779685

PATIENT
  Sex: Female
  Weight: 40 kg

DRUGS (3)
  1. METHOTREXATE [Suspect]
     Route: 048
     Dates: start: 20060101, end: 20110524
  2. FOLIC ACID [Concomitant]
     Route: 048
     Dates: start: 20060101, end: 20110524
  3. ACTEMRA [Suspect]
     Dosage: LAST PERFUSION: 13 MAY 2011
     Route: 042
     Dates: start: 20090919, end: 20110524

REACTIONS (1)
  - HEPATITIS [None]
